FAERS Safety Report 8764651 (Version 1)
Quarter: 2012Q4

REPORT INFORMATION
  Report Type: 
  Country: SE (occurrence: SE)
  Receive Date: 20120831
  Receipt Date: 20120831
  Transmission Date: 20130627
  Serious: Yes (Other)
  Sender: FDA-Public Use
  Company Number: SE-PFIZER INC-2012209476

PATIENT
  Age: 65 Year
  Sex: Male

DRUGS (10)
  1. VIAGRA [Suspect]
     Dosage: 100 mg, as needed
     Dates: start: 2002
  2. TRUSOPT [Concomitant]
     Indication: GLAUCOMA
     Dosage: UNK
  3. PREDNISOLON [Concomitant]
     Indication: AUTOIMMUNE HEPATITIS
     Dosage: UNK
  4. IMUREL [Concomitant]
     Indication: AUTOIMMUNE HEPATITIS
     Dosage: UNK
  5. METOPROLOL [Concomitant]
     Indication: ARRHYTHMIA
     Dosage: UNK
  6. METOPROLOL [Concomitant]
     Indication: HYPERTENSION
  7. ENALAPRIL [Concomitant]
     Indication: ARRHYTHMIA
     Dosage: UNK
  8. ENALAPRIL [Concomitant]
     Indication: HYPERTENSION
  9. TROMBYL [Concomitant]
     Indication: ARRHYTHMIA
     Dosage: UNK
  10. TROMBYL [Concomitant]
     Indication: HYPERTENSION

REACTIONS (1)
  - Visual acuity reduced [Not Recovered/Not Resolved]
